FAERS Safety Report 8342319-8 (Version None)
Quarter: 2012Q2

REPORT INFORMATION
  Report Type: 
  Country: None (occurrence: None)
  Receive Date: 20120507
  Receipt Date: 20120430
  Transmission Date: 20120825
  Serious: Yes (Hospitalization)
  Sender: FDA-Public Use
  Company Number: US-AMGEN-KDC424796

PATIENT
  Age: 69 Year
  Sex: Female

DRUGS (5)
  1. NEULASTA [Suspect]
     Indication: BREAST CANCER
     Dosage: 5 MUG/KG, UNK
     Dates: start: 20100413
  2. BEVACIZUMAB [Suspect]
  3. DOXORUBICIN HYDROCHLORIDE [Suspect]
     Indication: BREAST CANCER
     Dosage: 60 MG/M2, UNK
     Route: 042
     Dates: start: 20100413
  4. CYCLOPHOSPHAMIDE [Suspect]
     Indication: BREAST CANCER
     Dosage: UNK
     Route: 042
     Dates: start: 20100413
  5. PACLITAXEL [Suspect]
     Indication: BREAST CANCER
     Dosage: 80 MG/M2, UNK
     Route: 042
     Dates: start: 20100413

REACTIONS (5)
  - PYREXIA [None]
  - DIARRHOEA [None]
  - URINARY TRACT INFECTION [None]
  - HYPERGLYCAEMIA [None]
  - PROTEINURIA [None]
